FAERS Safety Report 11246136 (Version 1)
Quarter: 2015Q3

REPORT INFORMATION
  Report Type: Report from Study
  Country: US (occurrence: US)
  Receive Date: 20150708
  Receipt Date: 20150708
  Transmission Date: 20151125
  Serious: Yes (Hospitalization, Other)
  Sender: FDA-Public Use
  Company Number: US-GILEAD-2015-0156721

PATIENT
  Age: 51 Year
  Sex: Female

DRUGS (2)
  1. AMBRISENTAN [Suspect]
     Active Substance: AMBRISENTAN
     Indication: PRODUCT USED FOR UNKNOWN INDICATION
     Dosage: 10 MG, QD
     Route: 065
     Dates: start: 20150514
  2. REVATIO [Concomitant]
     Active Substance: SILDENAFIL CITRATE

REACTIONS (9)
  - Road traffic accident [Unknown]
  - Hepatic encephalopathy [Unknown]
  - Drug screen positive [Unknown]
  - Ammonia increased [Unknown]
  - Hepatic cirrhosis [Unknown]
  - Dizziness [Unknown]
  - Oedema peripheral [Unknown]
  - Unevaluable event [Unknown]
  - Headache [Unknown]
